FAERS Safety Report 11617246 (Version 3)
Quarter: 2015Q4

REPORT INFORMATION
  Report Type: Report from Study
  Country: US (occurrence: US)
  Receive Date: 20151009
  Receipt Date: 20151229
  Transmission Date: 20160304
  Serious: Yes (Hospitalization)
  Sender: FDA-Public Use
  Company Number: US-ACTELION-A-NJ2015-125129

PATIENT
  Age: 65 Year
  Sex: Female

DRUGS (3)
  1. MACITENTAN [Suspect]
     Active Substance: MACITENTAN
     Indication: PULMONARY HYPERTENSION
     Dosage: 10 MG, QD
     Route: 048
     Dates: start: 20141027
  2. ADCIRCA [Concomitant]
     Active Substance: TADALAFIL
  3. TREPROSTINIL DIOLAMIN [Concomitant]
     Active Substance: TREPROSTINIL DIOLAMINE

REACTIONS (5)
  - Amnesia [Unknown]
  - Physical disability [Unknown]
  - Muscular weakness [Unknown]
  - Oxygen saturation decreased [Unknown]
  - Tremor [Unknown]

NARRATIVE: CASE EVENT DATE: 20150927
